FAERS Safety Report 9140209 (Version 1)
Quarter: 2013Q1

REPORT INFORMATION
  Report Type: Spontaneous
  Country: GB (occurrence: GB)
  Receive Date: 20130305
  Receipt Date: 20130305
  Transmission Date: 20140127
  Serious: Yes (Life-Threatening)
  Sender: FDA-Public Use
  Company Number: GB-ASTRAZENECA-2013SE14213

PATIENT
  Age: 70 Year
  Sex: Male
  Weight: 78 kg

DRUGS (5)
  1. OMEPRAZOLE [Suspect]
     Indication: GASTRITIS
     Route: 048
     Dates: start: 20121123, end: 20121129
  2. ASPIRIN [Concomitant]
  3. ATORVASTATIN [Concomitant]
  4. BENDROFLUMETHIAZIDE [Concomitant]
  5. PARACETAMOL [Concomitant]

REACTIONS (2)
  - Blood creatine increased [Recovering/Resolving]
  - Tubulointerstitial nephritis [Recovering/Resolving]
